FAERS Safety Report 16568948 (Version 1)
Quarter: 2019Q3

REPORT INFORMATION
  Report Type: Spontaneous
  Country: DE (occurrence: DE)
  Receive Date: 20190713
  Receipt Date: 20190713
  Transmission Date: 20191004
  Serious: Yes (Hospitalization)
  Sender: FDA-Public Use
  Company Number: DE-TEVA-2019-DE-1075821

PATIENT
  Age: 56 Year
  Sex: Female

DRUGS (4)
  1. CISPLATIN. [Suspect]
     Active Substance: CISPLATIN
     Dosage: NK MG, NK
  2. GLIMEPIRID [Concomitant]
     Active Substance: GLIMEPIRIDE
     Dosage: NK MG, 1-0-1-0
  3. GEMCITABINE. [Suspect]
     Active Substance: GEMCITABINE
     Dosage: NK MG, NK
  4. INSULIN HUMAN [Concomitant]
     Active Substance: INSULIN HUMAN
     Dosage: 2 IU, FOR BZ OVER 150 MG

REACTIONS (3)
  - Cold sweat [Unknown]
  - Dyspnoea [Unknown]
  - Chest pain [Unknown]
